FAERS Safety Report 6565497-X (Version None)
Quarter: 2010Q1

REPORT INFORMATION
  Report Type: 
  Country: None (occurrence: None)
  Receive Date: 20100201
  Receipt Date: 20100121
  Transmission Date: 20100710
  Serious: Yes (Death)
  Sender: FDA-Public Use
  Company Number: US-ELI_LILLY_AND_COMPANY-US201001004455

PATIENT
  Sex: Male

DRUGS (2)
  1. EFFIENT [Suspect]
  2. PLAVIX [Concomitant]

REACTIONS (1)
  - DEATH [None]
